FAERS Safety Report 10015007 (Version 1)
Quarter: 2014Q1

REPORT INFORMATION
  Report Type: Spontaneous
  Country: US (occurrence: US)
  Receive Date: 20140317
  Receipt Date: 20140317
  Transmission Date: 20141002
  Serious: No
  Sender: FDA-Public Use
  Company Number: US-009507513-1403USA001246

PATIENT
  Sex: Male

DRUGS (1)
  1. LOSARTAN POTASSIUM TABLETS [Suspect]
     Dosage: A FEW DAYS
     Route: 048
     Dates: start: 2012

REACTIONS (3)
  - Blood pressure increased [Recovered/Resolved]
  - Dizziness [Recovered/Resolved]
  - Palpitations [Recovered/Resolved]
